FAERS Safety Report 10376494 (Version 1)
Quarter: 2014Q3

REPORT INFORMATION
  Report Type: Spontaneous
  Country: GB (occurrence: None)
  Receive Date: 20140806
  Receipt Date: 20140806
  Transmission Date: 20150326
  Serious: Yes (Other)
  Sender: FDA-Public Use
  Company Number: AUR-APL-2014-08186

PATIENT
  Age: 46 Year
  Sex: Female
  Weight: 152 kg

DRUGS (4)
  1. ORAMORPH SR SUSTAINED RELEASE [Suspect]
     Active Substance: MORPHINE SULFATE
     Indication: ABDOMINAL PAIN LOWER
     Dates: start: 20140527, end: 20140625
  2. ORAMORPH SR SUSTAINED RELEASE [Suspect]
     Active Substance: MORPHINE SULFATE
     Indication: HEADACHE
     Dates: start: 20140527, end: 20140625
  3. WARFARIN [Suspect]
     Active Substance: WARFARIN
     Indication: PRODUCT USED FOR UNKNOWN INDICATION
  4. TRAMADOL [Suspect]
     Active Substance: TRAMADOL
     Indication: PAIN
     Dates: end: 20140531

REACTIONS (7)
  - Drug interaction [None]
  - Convulsion [None]
  - Nausea [None]
  - Dysphemia [None]
  - Abdominal pain lower [None]
  - Headache [None]
  - Aphasia [None]
